FAERS Safety Report 13292517 (Version 3)
Quarter: 2017Q2

REPORT INFORMATION
  Report Type: Spontaneous
  Country: GR (occurrence: GR)
  Receive Date: 20170303
  Receipt Date: 20170515
  Transmission Date: 20170830
  Serious: Yes (Other)
  Sender: FDA-Public Use
  Company Number: GR-BAYER-2017-037498

PATIENT
  Age: 57 Year
  Sex: Male

DRUGS (1)
  1. CIPROXIN 500 MG [Suspect]
     Active Substance: CIPROFLOXACIN
     Indication: SINUSITIS
     Dosage: 500 MG, BID
     Route: 048
     Dates: start: 201702, end: 201702

REACTIONS (8)
  - Monoplegia [Recovering/Resolving]
  - Muscular weakness [Recovering/Resolving]
  - Guillain-Barre syndrome [Recovering/Resolving]
  - Hypoaesthesia [Recovering/Resolving]
  - Polyneuropathy [Recovering/Resolving]
  - Facial paralysis [Recovering/Resolving]
  - Dysaesthesia [Recovering/Resolving]
  - Pain in extremity [Recovering/Resolving]

NARRATIVE: CASE EVENT DATE: 201702
